FAERS Safety Report 4432027-8 (Version None)
Quarter: 2004Q3

REPORT INFORMATION
  Report Type: 
  Country: None (occurrence: None)
  Receive Date: 20040818
  Receipt Date: 20040805
  Transmission Date: 20050211
  Serious: Yes (Life-Threatening, Hospitalization, Other)
  Sender: FDA-Public Use
  Company Number: 2004048122

PATIENT
  Sex: Female
  Weight: 81.6475 kg

DRUGS (15)
  1. NEURONTIN [Suspect]
     Indication: PAIN
     Dosage: 900 MG (300MG,3 IN 1 D), ORAL
     Route: 048
     Dates: start: 20030301
  2. ALL OTHER THERAPEUTIC PROUCTS (ALL OTHER THERAPEUTIC PRODUCTS) [Suspect]
     Indication: ILL-DEFINED DISORDER
  3. TRAZODONE HCL [Concomitant]
  4. LEVOTHYROXINE SODIUM [Concomitant]
  5. SPIRONOLACTONE [Concomitant]
  6. VENLAFAXINE HYDROCHLORIDE (VENLFAXINE HYDROCHLORIDE) [Concomitant]
  7. LORAZEPAM [Concomitant]
  8. TOLTERODINE TARTRATE [Concomitant]
  9. WARFARIN (WARFARIN) [Concomitant]
  10. HYDROCODONE (HYDROCODONE) [Concomitant]
  11. RISEDRONATE SODIUM (RISEDRONATE SODIUM) [Concomitant]
  12. ESOMEPRAZOLE (ESOMEPRAZOLE) [Concomitant]
  13. DIAZEPAM [Concomitant]
  14. PREDNISONE TAB [Concomitant]
  15. RISPERDAL [Concomitant]

REACTIONS (14)
  - ASTHENIA [None]
  - CONSTIPATION [None]
  - DEPRESSED LEVEL OF CONSCIOUSNESS [None]
  - DRUG INTERACTION [None]
  - DYSPNOEA [None]
  - DYSURIA [None]
  - EMPHYSEMA [None]
  - FALL [None]
  - FEELING ABNORMAL [None]
  - KNEE OPERATION [None]
  - LARGE INTESTINAL HAEMORRHAGE [None]
  - LUNG DISORDER [None]
  - RESPIRATORY DISORDER [None]
  - TREATMENT NONCOMPLIANCE [None]
